FAERS Safety Report 17292618 (Version 1)
Quarter: 2020Q1

REPORT INFORMATION
  Report Type: Spontaneous
  Country: SK (occurrence: SK)
  Receive Date: 20200121
  Receipt Date: 20200121
  Transmission Date: 20200409
  Serious: Yes (Hospitalization)
  Sender: FDA-Public Use
  Company Number: SK-BAYER-2020-000637

PATIENT
  Age: 47 Year
  Sex: Female
  Weight: 55 kg

DRUGS (3)
  1. AUGMENTIN BIS [Concomitant]
  2. VISIPAQUE [Suspect]
     Active Substance: IODIXANOL
     Route: 042
  3. ULTRAVIST [Suspect]
     Active Substance: IOPROMIDE
     Dosage: 100 ML
     Route: 042

REACTIONS (1)
  - Erythema [Recovered/Resolved]
